FAERS Safety Report 6910719-6 (Version None)
Quarter: 2010Q3

REPORT INFORMATION
  Report Type: 
  Country: None (occurrence: None)
  Receive Date: 20100806
  Receipt Date: 20100802
  Transmission Date: 20110219
  Serious: Yes (Life-Threatening, Hospitalization)
  Sender: FDA-Public Use
  Company Number: PH-BAYER-200927449GPV

PATIENT
  Age: 64 Year
  Sex: Male
  Weight: 72 kg

DRUGS (8)
  1. SORAFENIB [Suspect]
     Indication: HEPATIC NEOPLASM MALIGNANT
     Route: 048
     Dates: start: 20081129, end: 20100717
  2. METOPROLOL [Concomitant]
     Indication: HYPERTENSION
     Dates: start: 20080501
  3. HYDROCHLOROTHIAZIDE / IMIDAPRIL HYDROCHLORID [Concomitant]
     Indication: HYPERTENSION
     Dates: start: 20080501
  4. ASPIRINE [Concomitant]
     Indication: THROMBOSIS PROPHYLAXIS
     Dates: start: 20090107
  5. VASTAREL [Concomitant]
     Indication: MYOCARDIAL ISCHAEMIA
     Dates: start: 20090401
  6. ALLOPURINOL [Concomitant]
     Indication: HYPERURICAEMIA
     Dates: start: 20090121
  7. PLAVIX [Concomitant]
     Indication: MYOCARDIAL ISCHAEMIA
     Dates: start: 20090317
  8. SIMVASTATIN [Concomitant]
     Indication: HYPERCHOLESTEROLAEMIA
     Dates: start: 20090107

REACTIONS (7)
  - ACUTE RESPIRATORY FAILURE [None]
  - ANGINA PECTORIS [None]
  - DYSPNOEA [None]
  - HERPES ZOSTER [None]
  - HYPOXIC-ISCHAEMIC ENCEPHALOPATHY [None]
  - MYOCARDIAL ISCHAEMIA [None]
  - PNEUMONIA [None]
